FAERS Safety Report 7064850-8 (Version None)
Quarter: 2010Q4

REPORT INFORMATION
  Report Type: 
  Country: None (occurrence: None)
  Receive Date: 20101027
  Receipt Date: 19880426
  Transmission Date: 20110411
  Serious: Yes (Death)
  Sender: FDA-Public Use
  Company Number: US-ROCHE-880200536001

PATIENT
  Sex: Male

DRUGS (8)
  1. KLONOPIN [Suspect]
     Route: 048
     Dates: start: 19880406, end: 19880418
  2. KLONOPIN [Suspect]
     Route: 048
     Dates: start: 19880419, end: 19880509
  3. KLONOPIN [Suspect]
     Route: 048
     Dates: start: 19880510, end: 19880511
  4. KLONOPIN [Suspect]
     Route: 048
     Dates: start: 19880512, end: 19880514
  5. KLONOPIN [Suspect]
     Route: 048
     Dates: start: 19880515, end: 19880515
  6. KLONOPIN [Suspect]
     Route: 048
     Dates: start: 19880516, end: 19880517
  7. PHENOBARBITAL [Concomitant]
     Route: 065
  8. FERRUM [Concomitant]
     Route: 065

REACTIONS (3)
  - APNOEA [None]
  - BRADYCARDIA [None]
  - INCREASED BRONCHIAL SECRETION [None]
